FAERS Safety Report 9482441 (Version 6)
Quarter: 2013Q4

REPORT INFORMATION
  Report Type: Report from Study
  Country: CA (occurrence: CA)
  Receive Date: 20130828
  Receipt Date: 20131009
  Transmission Date: 20140711
  Serious: Yes (Hospitalization, Other)
  Sender: FDA-Public Use
  Company Number: CA-ROCHE-1266320

PATIENT
  Age: 65 Year
  Sex: Male
  Weight: 90.9 kg

DRUGS (13)
  1. RITUXAN [Suspect]
     Indication: RHEUMATOID ARTHRITIS
     Dosage: DAY 1, 15
     Route: 042
     Dates: start: 2009
  2. RITUXAN [Suspect]
     Dosage: DAY 1, 15
     Route: 042
     Dates: start: 20130903
  3. METHOTREXATE [Suspect]
     Indication: RHEUMATOID ARTHRITIS
     Route: 065
  4. METHYLPREDNISOLONE [Concomitant]
     Route: 042
     Dates: start: 20130903
  5. GLICLAZIDE [Concomitant]
  6. RAMIPRIL [Concomitant]
  7. ACETYLSALICYLIC ACID [Concomitant]
  8. OXYCODONE [Concomitant]
  9. LEVEMIR [Concomitant]
  10. SIMVASTATIN [Concomitant]
  11. FOLIC ACID [Concomitant]
  12. DIPHENHYDRAMINE HCL [Concomitant]
     Route: 048
     Dates: start: 20130903
  13. ACETAMINOPHEN [Concomitant]
     Route: 048
     Dates: start: 20130903

REACTIONS (6)
  - Pulmonary oedema [Unknown]
  - Renal cancer [Recovering/Resolving]
  - Weight decreased [Unknown]
  - Rheumatoid arthritis [Not Recovered/Not Resolved]
  - Blood pressure increased [Unknown]
  - Nasopharyngitis [Recovering/Resolving]
